FAERS Safety Report 11019296 (Version 2)
Quarter: 2015Q2

REPORT INFORMATION
  Report Type: Report from Study
  Country: DE (occurrence: DE)
  Receive Date: 20150412
  Receipt Date: 20150416
  Transmission Date: 20150821
  Serious: Yes (Hospitalization, Other)
  Sender: FDA-Public Use
  Company Number: PHHY2015DE028945

PATIENT
  Sex: Female
  Weight: 74 kg

DRUGS (4)
  1. AFINITOR [Suspect]
     Active Substance: EVEROLIMUS
     Indication: BREAST CANCER METASTATIC
     Dosage: 10 MG, QD
     Route: 048
     Dates: start: 20150218, end: 20150329
  2. ZOLEDRONIC ACID [Concomitant]
     Active Substance: ZOLEDRONIC ACID
     Indication: PROPHYLAXIS
     Dosage: 4 MG, ONCE PER MONTH
     Route: 065
     Dates: start: 20140401
  3. AROMASIN [Concomitant]
     Active Substance: EXEMESTANE
     Indication: BREAST CANCER METASTATIC
     Dosage: 25 MG, QD
     Route: 048
     Dates: start: 20150218, end: 20150329
  4. ZOLEDRONIC ACID [Concomitant]
     Active Substance: ZOLEDRONIC ACID
     Dosage: 4 MG, ONCE PER MONTH
     Route: 065
     Dates: start: 20140909

REACTIONS (12)
  - Pleural effusion [Recovered/Resolved]
  - Pneumonia [Recovered/Resolved]
  - Metastases to pleura [Not Recovered/Not Resolved]
  - Pleural effusion [Recovered/Resolved]
  - Pneumonitis [Recovered/Resolved]
  - Anaemia [Recovering/Resolving]
  - Pleural effusion [Recovered/Resolved]
  - Stomatitis [Not Recovered/Not Resolved]
  - Pleural effusion [Recovering/Resolving]
  - Haemoptysis [Recovered/Resolved]
  - Puncture site haemorrhage [Unknown]
  - Vomiting [Recovered/Resolved]

NARRATIVE: CASE EVENT DATE: 20150225
